FAERS Safety Report 8071806 (Version 11)
Quarter: 2013Q3

REPORT INFORMATION
  Report Type: Report from Study
  Country: CA (occurrence: CA)
  Receive Date: 20110805
  Receipt Date: 20130906
  Transmission Date: 20140515
  Serious: Yes (Death, Hospitalization, Other)
  Sender: FDA-Public Use
  Company Number: PHHY2011CA68504

PATIENT
  Age: 43 Year
  Sex: Male

DRUGS (5)
  1. SANDOSTATIN LAR [Suspect]
     Indication: NEUROENDOCRINE TUMOUR
     Dosage: 20 MG, QMO
     Route: 030
     Dates: start: 20110525
  2. SANDOSTATIN LAR [Suspect]
     Dosage: 20 MG, EVERY 4 WEEKS
     Route: 030
     Dates: end: 20130808
  3. EVEROLIMUS [Concomitant]
     Dosage: 5 MG, QD
     Route: 048
  4. GABAPENTIN [Concomitant]
     Dosage: UNK UKN, UNK
  5. LOSEC [Concomitant]
     Dosage: UNK UKN, UNK

REACTIONS (12)
  - Death [Fatal]
  - Pneumothorax [Recovering/Resolving]
  - Musculoskeletal chest pain [Recovered/Resolved]
  - Dyspnoea [Recovering/Resolving]
  - Back pain [Unknown]
  - Fall [Unknown]
  - Hepatic neoplasm [Not Recovered/Not Resolved]
  - Neoplasm recurrence [Unknown]
  - Heart rate increased [Unknown]
  - Pain [Unknown]
  - Chest pain [Unknown]
  - Abdominal pain upper [Unknown]
